FAERS Safety Report 21253175 (Version 2)
Quarter: 2023Q1

REPORT INFORMATION
  Report Type: Report from Study
  Country: KR (occurrence: KR)
  Receive Date: 20220825
  Receipt Date: 20230211
  Transmission Date: 20230418
  Serious: Yes (Death, Life-Threatening, Hospitalization)
  Sender: FDA-Public Use
  Company Number: KR-CELLTRION INC.-2022KR013821

PATIENT

DRUGS (9)
  1. TRASTUZUMAB [Suspect]
     Active Substance: TRASTUZUMAB
     Indication: Breast cancer
     Dosage: CYCLE 1 DAY 1
     Route: 042
     Dates: start: 20220720, end: 20220720
  2. ABEMACICLIB [Suspect]
     Active Substance: ABEMACICLIB
     Indication: Breast cancer
     Dosage: CYCLE 1 DAY 1
     Dates: start: 20220720
  3. FULVESTRANT [Suspect]
     Active Substance: FULVESTRANT
     Indication: Breast cancer
     Dosage: CYCLE 1 DAY 1
     Dates: start: 20220720
  4. CETAMADOL [Concomitant]
     Indication: Cancer pain
     Dosage: 1 TABLET PRN
     Route: 048
     Dates: start: 20220108, end: 202208
  5. FENTANYL [Concomitant]
     Active Substance: FENTANYL
     Indication: Cancer pain
     Dosage: 1 TABLET PRN (CONCENTRATION: 100MCG)
     Route: 048
     Dates: start: 20220320, end: 202208
  6. NALOXONE HYDROCHLORIDE\OXYCODONE HYDROCHLORIDE [Concomitant]
     Active Substance: NALOXONE HYDROCHLORIDE\OXYCODONE HYDROCHLORIDE
     Indication: Cancer pain
     Dosage: 1 TABLET, PRN
     Route: 048
     Dates: start: 20220421, end: 202208
  7. URSODIOL [Concomitant]
     Active Substance: URSODIOL
     Indication: Liver function test increased
     Dosage: 100MG, TID
     Route: 048
     Dates: start: 20220715, end: 202208
  8. ACETAMINOPHEN [Concomitant]
     Active Substance: ACETAMINOPHEN
     Indication: Cancer pain
     Dosage: 1 CAPSULE PRN
     Route: 048
     Dates: start: 20220720, end: 202208
  9. GODEX [ADENINE HYDROCHLORIDE;BIFENDATE;CARNITINE OROTATE;CYANOCOBALAMI [Concomitant]
     Indication: Liver function test increased
     Dosage: UNK, TID
     Route: 048
     Dates: start: 20220715, end: 202208

REACTIONS (3)
  - Anaemia [Fatal]
  - Platelet count decreased [Unknown]
  - Intentional dose omission [Unknown]

NARRATIVE: CASE EVENT DATE: 20220818
